FAERS Safety Report 12459757 (Version 1)
Quarter: 2016Q2

REPORT INFORMATION
  Report Type: Spontaneous
  Country: US (occurrence: None)
  Receive Date: 20160610
  Receipt Date: 20160610
  Transmission Date: 20160815
  Serious: Yes (Other)
  Sender: FDA-Public Use
  Company Number: None

PATIENT
  Age: 5 Year
  Sex: Female
  Weight: 15.9 kg

DRUGS (1)
  1. MORPHINE SULFATE INJ, USP, 1 MG/ML IMS, LIMITED [Suspect]
     Active Substance: MORPHINE SULFATE
     Indication: PAIN
     Dosage: 30 ML CONT. INFUSION INTRAVENOUS DRIP
     Route: 041
     Dates: start: 20160605, end: 20160605

REACTIONS (3)
  - Pain [None]
  - Incorrect dose administered by device [None]
  - Syringe issue [None]

NARRATIVE: CASE EVENT DATE: 20160606
